FAERS Safety Report 6631122-2 (Version None)
Quarter: 2010Q1

REPORT INFORMATION
  Report Type: 
  Country: None (occurrence: None)
  Receive Date: 20100309
  Receipt Date: 20100224
  Transmission Date: 20100710
  Serious: No
  Sender: FDA-Public Use
  Company Number: 231532J10USA

PATIENT
  Age: 12 Year
  Sex: Female

DRUGS (3)
  1. REBIF [Suspect]
     Indication: OFF LABEL USE
     Dosage: 22 MCG, 3 IN 1 WEEKS, SUBCUTANEOUS
     Route: 058
     Dates: start: 20091201
  2. ALEVE [Concomitant]
  3. TYLENOL [Concomitant]

REACTIONS (2)
  - NO ADVERSE EVENT [None]
  - OFF LABEL USE [None]
